FAERS Safety Report 9528475 (Version 3)
Quarter: 2014Q1

REPORT INFORMATION
  Report Type: Spontaneous
  Country: US (occurrence: None)
  Receive Date: 20130329
  Receipt Date: 20131223
  Transmission Date: 20141002
  Serious: No
  Sender: FDA-Public Use
  Company Number: 1000043061

PATIENT
  Age: 39 Year
  Sex: Female

DRUGS (2)
  1. LINZESS [Suspect]
     Indication: IRRITABLE BOWEL SYNDROME
     Dosage: 290 MCG (290 MCG, 1 IN 1 D)?
     Route: 048
     Dates: start: 20130116, end: 20130221
  2. CLINDAMYCIN (CLINDAMYCIN) (CLINDAMYCIN) [Concomitant]

REACTIONS (2)
  - Rash [None]
  - Lip swelling [None]
